FAERS Safety Report 12756966 (Version 2)
Quarter: 2016Q3

REPORT INFORMATION
  Report Type: Spontaneous
  Country: VE (occurrence: VE)
  Receive Date: 20160917
  Receipt Date: 20160929
  Transmission Date: 20161109
  Serious: Yes (Life-Threatening, Hospitalization, Other)
  Sender: FDA-Public Use
  Company Number: PHHY2016VE127528

PATIENT
  Sex: Female

DRUGS (10)
  1. ONBREZ BREEZHALER [Suspect]
     Active Substance: INDACATEROL
     Indication: CHRONIC OBSTRUCTIVE PULMONARY DISEASE
     Dosage: UNK UNK, BID
     Route: 065
     Dates: start: 20160913
  2. FORADIL [Suspect]
     Active Substance: FORMOTEROL FUMARATE
     Indication: ASTHMA
  3. AIRON [Concomitant]
     Indication: HYPERSENSITIVITY
  4. MIFLONIDE [Suspect]
     Active Substance: BUDESONIDE
     Indication: CHRONIC OBSTRUCTIVE PULMONARY DISEASE
     Dosage: 1200 UG, QD
     Route: 065
  5. FORADIL [Suspect]
     Active Substance: FORMOTEROL FUMARATE
     Indication: CHRONIC OBSTRUCTIVE PULMONARY DISEASE
     Dosage: 36 UG, QD
     Route: 065
  6. MIFLONIDE [Suspect]
     Active Substance: BUDESONIDE
     Indication: ASTHMA
  7. ONBREZ BREEZHALER [Suspect]
     Active Substance: INDACATEROL
     Indication: ASTHMA
  8. XOLAIR [Suspect]
     Active Substance: OMALIZUMAB
     Indication: ASTHMA
     Dosage: 150 UG, QMO
     Route: 065
  9. AIRON [Concomitant]
     Indication: ASTHMA
     Dosage: 1 DF, QD
     Route: 065
  10. TEOFILINA [Concomitant]
     Indication: ASTHMA
     Dosage: 1 DF, BID
     Route: 065

REACTIONS (9)
  - Chronic obstructive pulmonary disease [Not Recovered/Not Resolved]
  - Drug ineffective [Recovered/Resolved]
  - Product use issue [Unknown]
  - Impaired healing [Recovered/Resolved]
  - Malaise [Not Recovered/Not Resolved]
  - Crying [Recovered/Resolved]
  - Feeling abnormal [Recovered/Resolved]
  - Dyspnoea [Not Recovered/Not Resolved]
  - Asthmatic crisis [Not Recovered/Not Resolved]
